FAERS Safety Report 9631091 (Version 3)
Quarter: 2013Q4

REPORT INFORMATION
  Report Type: Spontaneous
  Country: DE (occurrence: DE)
  Receive Date: 20131018
  Receipt Date: 20131113
  Transmission Date: 20140711
  Serious: Yes (Other)
  Sender: FDA-Public Use
  Company Number: DE-TEVA-410449GER

PATIENT
  Age: 87 Year
  Sex: Female
  Weight: 65 kg

DRUGS (3)
  1. AMOXICILLIN-CT 750 MG FILMTABLETTEN [Suspect]
     Indication: TRACHEITIS
     Dosage: 2250 MILLIGRAM DAILY;
     Route: 048
     Dates: start: 20130411, end: 20130416
  2. AMLODIPIN-DEXCEL [Concomitant]
     Route: 048
  3. IBUPROFEN AL 800 MG [Concomitant]
     Route: 048

REACTIONS (2)
  - Anosmia [Not Recovered/Not Resolved]
  - Ageusia [Not Recovered/Not Resolved]
